FAERS Safety Report 9631125 (Version 4)
Quarter: 2014Q1

REPORT INFORMATION
  Report Type: Spontaneous
  Country: JP (occurrence: JP)
  Receive Date: 20131018
  Receipt Date: 20140305
  Transmission Date: 20141002
  Serious: Yes (Hospitalization, Disabling)
  Sender: FDA-Public Use
  Company Number: PHHY2013JP113753

PATIENT
  Age: 78 Year
  Sex: Female

DRUGS (5)
  1. TEGRETOL [Suspect]
     Indication: CEREBRAL INFARCTION
     Dosage: UNK UKN, UNK
     Route: 048
     Dates: start: 201307
  2. SYMMETREL [Suspect]
     Indication: CEREBRAL INFARCTION
     Dosage: 150 MG, DAILY
     Route: 048
     Dates: start: 201308, end: 20130925
  3. LASIX [Concomitant]
     Dosage: UNK UKN, UNK
  4. TAKEPRON [Concomitant]
     Dosage: UNK UKN, UNK
     Route: 048
  5. MAINTATE [Concomitant]
     Dosage: UNK UKN, UNK
     Route: 048

REACTIONS (4)
  - Renal failure acute [Recovering/Resolving]
  - Blood creatinine increased [Recovering/Resolving]
  - Blood urea increased [Recovered/Resolved]
  - Anuria [Recovered/Resolved]
